FAERS Safety Report 4840398-3 (Version None)
Quarter: 2005Q4

REPORT INFORMATION
  Report Type: 
  Country: None (occurrence: None)
  Receive Date: 20051024
  Receipt Date: 20050627
  Transmission Date: 20060501
  Serious: Yes (Hospitalization)
  Sender: FDA-Public Use
  Company Number: USA-2005-0020657

PATIENT
  Age: 61 Year
  Sex: Female

DRUGS (1)
  1. PALLADONE [Suspect]
     Indication: PAIN
     Dosage: 12 MG, Q24H, ORAL
     Route: 048

REACTIONS (2)
  - MIGRAINE [None]
  - SOMNOLENCE [None]
